FAERS Safety Report 18860296 (Version 1)
Quarter: 2021Q1

REPORT INFORMATION
  Report Type: Spontaneous
  Country: US (occurrence: US)
  Receive Date: 20210208
  Receipt Date: 20210208
  Transmission Date: 20210420
  Serious: No
  Sender: FDA-Public Use
  Company Number: US-CHI-000049

PATIENT
  Age: 45 Year
  Sex: Female

DRUGS (2)
  1. GOSERELIN IMPLANT [Concomitant]
     Route: 058
  2. FULVESTRANT INJECTION SODIUM [Suspect]
     Active Substance: FULVESTRANT
     Indication: BREAST CANCER
     Dosage: 250MG/5ML
     Route: 030
     Dates: start: 20210119

REACTIONS (2)
  - Chest pain [Unknown]
  - Dyspnoea [Unknown]

NARRATIVE: CASE EVENT DATE: 20210119
